FAERS Safety Report 18627217 (Version 1)
Quarter: 2020Q4

REPORT INFORMATION
  Report Type: Spontaneous
  Country: JP (occurrence: JP)
  Receive Date: 20201217
  Receipt Date: 20201217
  Transmission Date: 20210114
  Serious: Yes (Other)
  Sender: FDA-Public Use
  Company Number: JP-AMGEN-JPNSP2020189314

PATIENT
  Age: 74 Year
  Sex: Female
  Weight: 41 kg

DRUGS (6)
  1. TOKAKUJOKITO [CINNAMOMUM CASSIA BARK;GLYCYRRHIZA SPP. ROOT;PRUNUS SPP. [Concomitant]
     Indication: CONSTIPATION
     Dosage: 2.5 G, AS NEEDED
     Route: 048
  2. NORVASC [Concomitant]
     Active Substance: AMLODIPINE BESYLATE
     Indication: HYPERTENSION
     Dosage: 5.0 MG, BID
     Route: 048
  3. LETROZOLE. [Concomitant]
     Active Substance: LETROZOLE
     Indication: BREAST CANCER
     Dosage: 2.5 MG, QD
     Route: 048
  4. DEPAS [ETIZOLAM] [Concomitant]
     Active Substance: ETIZOLAM
     Indication: INSOMNIA
     Dosage: 0.5 MG, AS NEEDED
     Route: 048
  5. RANMARK [Suspect]
     Active Substance: DENOSUMAB
     Indication: METASTASES TO BONE
     Dosage: UNK
     Route: 065
     Dates: start: 2012
  6. PURSENNID [SENNOSIDE A+B CALCIUM] [Concomitant]
     Active Substance: SENNOSIDES A AND B
     Indication: CONSTIPATION
     Dosage: 24 MG, QD
     Route: 048

REACTIONS (3)
  - Gingival pain [Unknown]
  - Osteonecrosis of jaw [Recovering/Resolving]
  - Periodontitis [Unknown]

NARRATIVE: CASE EVENT DATE: 20130527
